FAERS Safety Report 12763757 (Version 1)
Quarter: 2016Q3

REPORT INFORMATION
  Report Type: Spontaneous
  Country: US (occurrence: US)
  Receive Date: 20160915
  Receipt Date: 20160915
  Transmission Date: 20161109
  Serious: No
  Sender: FDA-Public Use
  Company Number: None

PATIENT
  Age: 67 Year
  Sex: Male

DRUGS (1)
  1. COSENTYX [Suspect]
     Active Substance: SECUKINUMAB
     Indication: PSORIASIS
     Dosage: 2 PENS EVERY MONTH SUBCUTANEOUSLY
     Route: 058
     Dates: start: 20140724

REACTIONS (4)
  - Wrong technique in product usage process [None]
  - Accidental exposure to product [None]
  - Device issue [None]
  - Drug dose omission [None]

NARRATIVE: CASE EVENT DATE: 20160802
